FAERS Safety Report 18696886 (Version 1)
Quarter: 2021Q1

REPORT INFORMATION
  Report Type: Spontaneous
  Country: US (occurrence: US)
  Receive Date: 20210104
  Receipt Date: 20210104
  Transmission Date: 20210419
  Serious: Yes (Other)
  Sender: FDA-Public Use
  Company Number: US-MYLANLABS-2020M1106455

PATIENT
  Age: 74 Year
  Sex: Male

DRUGS (1)
  1. DOXYCYCLINE. [Suspect]
     Active Substance: DOXYCYCLINE
     Indication: ARTHRITIS INFECTIVE
     Dosage: 100 MILLIGRAM, BID
     Route: 065

REACTIONS (2)
  - Gastric disorder [Unknown]
  - Iron deficiency anaemia [Unknown]
